FAERS Safety Report 7093380-2 (Version None)
Quarter: 2010Q4

REPORT INFORMATION
  Report Type: 
  Country: None (occurrence: None)
  Receive Date: 20101110
  Receipt Date: 20101026
  Transmission Date: 20110411
  Serious: Yes (Other)
  Sender: FDA-Public Use
  Company Number: PHHY2010BE73581

PATIENT
  Sex: Male

DRUGS (2)
  1. DESFERAL [Suspect]
     Indication: APLASIA PURE RED CELL
     Dosage: UNK
  2. NEORAL [Suspect]
     Indication: HEART TRANSPLANT
     Dosage: UNK

REACTIONS (2)
  - RENAL FAILURE ACUTE [None]
  - RENAL FAILURE CHRONIC [None]
